FAERS Safety Report 19831959 (Version 1)
Quarter: 2021Q3

REPORT INFORMATION
  Report Type: Spontaneous
  Country: MY (occurrence: MY)
  Receive Date: 20210915
  Receipt Date: 20210915
  Transmission Date: 20211014
  Serious: Yes (Other)
  Sender: FDA-Public Use
  Company Number: NVSC2021MY205098

PATIENT
  Age: 62 Year
  Sex: Male

DRUGS (5)
  1. OCTREOTIDE. [Suspect]
     Active Substance: OCTREOTIDE
     Dosage: 75 UG, QH
     Route: 041
  2. LANREOTIDE [Suspect]
     Active Substance: LANREOTIDE
     Dosage: FREQUENCY SHORTENED TO BIWEEKLY
     Route: 030
  3. LANREOTIDE [Suspect]
     Active Substance: LANREOTIDE
     Indication: CARCINOID CRISIS
     Dosage: 120 MG, UNKNOWN 1?MONTH POST LOBECTOMY
     Route: 065
  4. OCTREOTIDE. [Suspect]
     Active Substance: OCTREOTIDE
     Dosage: 150 UG, QH
     Route: 041
  5. OCTREOTIDE. [Suspect]
     Active Substance: OCTREOTIDE
     Indication: CARCINOID CRISIS
     Dosage: UNK
     Route: 041

REACTIONS (1)
  - Diabetes insipidus [Unknown]
